FAERS Safety Report 10072536 (Version 2)
Quarter: 2014Q2

REPORT INFORMATION
  Report Type: Spontaneous
  Country: US (occurrence: US)
  Receive Date: 20140411
  Receipt Date: 20140411
  Transmission Date: 20141212
  Serious: Yes (Other)
  Sender: FDA-Public Use
  Company Number: US-PFIZER INC-2014097975

PATIENT
  Age: 63 Year
  Sex: Female

DRUGS (2)
  1. DOFETILIDE [Suspect]
     Indication: ATRIAL FIBRILLATION
     Dosage: UNK
  2. SEVOFLURANE [Interacting]
     Indication: GENERAL ANAESTHESIA
     Dosage: UNK
     Route: 055

REACTIONS (4)
  - Drug interaction [Recovered/Resolved]
  - Electrocardiogram QT prolonged [Recovered/Resolved]
  - Ventricular extrasystoles [Recovered/Resolved]
  - Ventricular fibrillation [Recovered/Resolved]
